FAERS Safety Report 7651723-2 (Version None)
Quarter: 2011Q3

REPORT INFORMATION
  Report Type: 
  Country: None (occurrence: None)
  Receive Date: 20110802
  Receipt Date: 20110721
  Transmission Date: 20111222
  Serious: Yes (Hospitalization, Other)
  Sender: FDA-Public Use
  Company Number: IE-GENENTECH-322191

PATIENT
  Sex: Male

DRUGS (2)
  1. XOLAIR [Suspect]
     Indication: ASTHMA
     Dosage: 300 MG, Q2W
     Route: 058
     Dates: start: 20110623
  2. XOLAIR [Suspect]
     Dosage: 300 MG, Q2W
     Dates: start: 20110711

REACTIONS (2)
  - UPPER RESPIRATORY TRACT INFECTION [None]
  - ASTHMA [None]
